FAERS Safety Report 6232001-5 (Version None)
Quarter: 2009Q2

REPORT INFORMATION
  Report Type: 
  Country: None (occurrence: None)
  Receive Date: 20090612
  Receipt Date: 20090603
  Transmission Date: 20091009
  Serious: Yes (Other)
  Sender: FDA-Public Use
  Company Number: CHNY2008JP03070

PATIENT
  Age: 33 Year
  Sex: Female

DRUGS (5)
  1. NICOTINE [Suspect]
     Dosage: 21 MG, QD, TRANSDERMAL, 14 MG, QD, TRANSDERMAL
     Route: 062
     Dates: start: 20080601, end: 20080701
  2. NICOTINE [Suspect]
     Dosage: 21 MG, QD, TRANSDERMAL, 14 MG, QD, TRANSDERMAL
     Route: 062
     Dates: start: 20080701, end: 20080714
  3. LANSOPRAZOLE [Suspect]
     Dosage: ORAL
     Route: 048
     Dates: start: 20080609, end: 20080714
  4. FAMOTIDINE [Concomitant]
  5. PRIMPERAN TAB [Concomitant]

REACTIONS (6)
  - ALANINE AMINOTRANSFERASE INCREASED [None]
  - ALCOHOL USE [None]
  - ASPARTATE AMINOTRANSFERASE INCREASED [None]
  - DERMATITIS CONTACT [None]
  - HEPATIC FUNCTION ABNORMAL [None]
  - LIVER DISORDER [None]
